FAERS Safety Report 7957197-6 (Version None)
Quarter: 2011Q4

REPORT INFORMATION
  Report Type: 
  Country: None (occurrence: None)
  Receive Date: 20111205
  Receipt Date: 20111128
  Transmission Date: 20120403
  Serious: Yes (Death, Other)
  Sender: FDA-Public Use
  Company Number: SG-BRISTOL-MYERS SQUIBB COMPANY-16254930

PATIENT
  Age: 74 Year
  Sex: Male

DRUGS (1)
  1. WARFARIN SODIUM [Suspect]

REACTIONS (2)
  - HAEMARTHROSIS [None]
  - ACUTE CORONARY SYNDROME [None]
